FAERS Safety Report 9306563 (Version 1)
Quarter: 2013Q1

REPORT INFORMATION
  Report Type: Spontaneous
  Country: GB (occurrence: None)
  Receive Date: 20130205
  Receipt Date: 20130205
  Transmission Date: 20140127
  Serious: Yes (Hospitalization)
  Sender: FDA-Public Use
  Company Number: 2012-0674

PATIENT
  Age: 72 Year
  Sex: Male
  Weight: 91 kg

DRUGS (11)
  1. CARFILZOMIB [Suspect]
     Indication: PLASMA CELL MYELOMA
     Dosage: 11.7143 MG (41 MG, DAYS 1, 2), INTRAVENOUS
     Dates: start: 20120523, end: 20120524
  2. PARACETAMOL (PARACETAMOL) (PARACETAMOL) [Concomitant]
  3. ACICLOVIR (ACICLOVIR) (ACICLOVIR) [Concomitant]
  4. ALLOPURINOL (ALLOPURINOL) (ALLOPURINOL) [Concomitant]
  5. BONEFOS (CLODRONATE DISODIUM) (CLODRONATE DISODIUM) [Concomitant]
  6. LANSOPRAZOLE (LANSOPRAZOLE) (LANSOPRAZOLE) [Concomitant]
  7. RAMIPRIL (RAMIPRIL) (RAMIPRIL) [Concomitant]
  8. ORAMORPH (MORPHINE SULFATE PENTAHYDRATE) (MORPHINE SULFATE PENTAHYDRATE) [Concomitant]
  9. TRAMADOL (TRAMADOL) (TRAMADOL) [Concomitant]
  10. DEXAMETHSONE (DEXAMETHASONE) (DEXAMETHASONE) [Concomitant]
  11. AMITRIPTYLINE (AMITRIPTYLINE) (AMITRIPTYLINE) [Concomitant]

REACTIONS (3)
  - Joint effusion [None]
  - Thrombocytopenia [None]
  - Soft tissue injury [None]
